FAERS Safety Report 23294080 (Version 1)
Quarter: 2023Q4

REPORT INFORMATION
  Report Type: Spontaneous
  Country: US (occurrence: None)
  Receive Date: 20231213
  Receipt Date: 20231213
  Transmission Date: 20240110
  Serious: Yes (Other)
  Sender: FDA-Public Use
  Company Number: None

PATIENT
  Age: 25 Year
  Sex: Male
  Weight: 48.99 kg

DRUGS (1)
  1. INFLECTRA [Suspect]
     Active Substance: INFLIXIMAB-DYYB
     Indication: Crohn^s disease
     Route: 041
     Dates: start: 20231213

REACTIONS (6)
  - Infusion related reaction [None]
  - Dyspnoea [None]
  - Flushing [None]
  - Oxygen saturation decreased [None]
  - Therapy interrupted [None]
  - Refusal of treatment by patient [None]

NARRATIVE: CASE EVENT DATE: 20231213
